FAERS Safety Report 4597907-1 (Version None)
Quarter: 2005Q1

REPORT INFORMATION
  Report Type: 
  Country: None (occurrence: None)
  Receive Date: 20050125
  Receipt Date: 20040830
  Transmission Date: 20050727
  Serious: No
  Sender: FDA-Public Use
  Company Number: USA040876791

PATIENT
  Age: 83 Year
  Sex: Female
  Weight: 82 kg

DRUGS (5)
  1. FORTEO [Suspect]
     Indication: OSTEOPOROSIS
     Dates: start: 20040714
  2. ASPIRIN [Concomitant]
  3. VITAMINS [Concomitant]
  4. UNSPECIFIED GLAUCOMA DROPS [Concomitant]
  5. CALCIUM PLUS D [Concomitant]

REACTIONS (2)
  - INJECTION SITE HAEMORRHAGE [None]
  - VISUAL ACUITY REDUCED [None]
